FAERS Safety Report 17498982 (Version 2)
Quarter: 2020Q3

REPORT INFORMATION
  Report Type: Spontaneous
  Country: US (occurrence: US)
  Receive Date: 20200305
  Receipt Date: 20200717
  Transmission Date: 20201102
  Serious: Yes (Life-Threatening, Hospitalization, Other)
  Sender: FDA-Public Use
  Company Number: US-CIPLA LTD.-2020US01464

PATIENT

DRUGS (3)
  1. FOLINIC ACID [Suspect]
     Active Substance: LEUCOVORIN
     Indication: ADENOCARCINOMA GASTRIC
     Dosage: UNK, 1 CYCLE (CYCLICAL)
     Route: 065
  2. OXALIPLATIN. [Suspect]
     Active Substance: OXALIPLATIN
     Indication: ADENOCARCINOMA GASTRIC
     Dosage: UNK, 1 CYCLE (CYCLICAL)
     Route: 065
  3. FLUOROURACIL. [Suspect]
     Active Substance: FLUOROURACIL
     Indication: ADENOCARCINOMA GASTRIC
     Dosage: UNK, 1 CYCLE (CYCLICAL)
     Route: 065

REACTIONS (2)
  - Tumour lysis syndrome [Recovered/Resolved]
  - Uraemic encephalopathy [Recovered/Resolved]
